FAERS Safety Report 24315276 (Version 1)
Quarter: 2024Q3

REPORT INFORMATION
  Report Type: Spontaneous
  Country: US (occurrence: US)
  Receive Date: 20240913
  Receipt Date: 20240913
  Transmission Date: 20241016
  Serious: No
  Sender: JOHNSON AND JOHNSON
  Company Number: US-JNJFOC-20240916049

PATIENT
  Sex: Female

DRUGS (2)
  1. XARELTO [Suspect]
     Active Substance: RIVAROXABAN
     Indication: Thrombosis
     Route: 048
  2. TIRZEPATIDE [Concomitant]
     Active Substance: TIRZEPATIDE

REACTIONS (3)
  - Visual impairment [Unknown]
  - Weight decreased [Unknown]
  - Off label use [Unknown]
